FAERS Safety Report 6594517-1 (Version None)
Quarter: 2010Q1

REPORT INFORMATION
  Report Type: 
  Country: None (occurrence: None)
  Receive Date: 20100222
  Receipt Date: 20100211
  Transmission Date: 20100710
  Serious: Yes (Other)
  Sender: FDA-Public Use
  Company Number: US-PFIZER INC-2006114598

PATIENT
  Sex: Female
  Weight: 58.957 kg

DRUGS (4)
  1. CHANTIX [Suspect]
     Indication: SMOKING CESSATION THERAPY
     Route: 048
     Dates: start: 20060921, end: 20060921
  2. CHANTIX [Interacting]
     Dosage: 0.5 MG ONCE DAILY
     Dates: start: 20100201
  3. RISPERDAL [Concomitant]
  4. KLONOPIN [Concomitant]

REACTIONS (9)
  - BIPOLAR DISORDER [None]
  - DRUG INEFFECTIVE [None]
  - DRUG INTERACTION [None]
  - FEELING ABNORMAL [None]
  - IMPAIRED DRIVING ABILITY [None]
  - MALAISE [None]
  - NERVOUSNESS [None]
  - PARANOIA [None]
  - TOBACCO USER [None]
